FAERS Safety Report 13108069 (Version 2)
Quarter: 2017Q1

REPORT INFORMATION
  Report Type: Spontaneous
  Country: US (occurrence: US)
  Receive Date: 20170112
  Receipt Date: 20170327
  Transmission Date: 20170428
  Serious: No
  Sender: FDA-Public Use
  Company Number: US-PFIZER INC-2017012137

PATIENT
  Age: 57 Year
  Sex: Male

DRUGS (1)
  1. FOLIC ACID. [Suspect]
     Active Substance: FOLIC ACID
     Indication: MYOCARDIAL INFARCTION
     Dosage: UNK
     Dates: start: 2015, end: 2016

REACTIONS (4)
  - Product use issue [Unknown]
  - Drug level fluctuating [Unknown]
  - Prescribed overdose [Unknown]
  - Overdose [Unknown]

NARRATIVE: CASE EVENT DATE: 2015
